FAERS Safety Report 15518885 (Version 1)
Quarter: 2018Q4

REPORT INFORMATION
  Report Type: Spontaneous
  Country: KR (occurrence: KR)
  Receive Date: 20181017
  Receipt Date: 20181017
  Transmission Date: 20190205
  Serious: Yes (Death)
  Sender: FDA-Public Use
  Company Number: KR-FRESENIUS KABI-FK201810793

PATIENT
  Age: 58 Year
  Sex: Male

DRUGS (2)
  1. TIROFIBAN HYDROCHLORIDE. [Suspect]
     Active Substance: TIROFIBAN HYDROCHLORIDE
     Indication: PRODUCT USED FOR UNKNOWN INDICATION
     Dosage: UNKNOWN
     Route: 013
  2. HEPARIN (MANUFACTURER UNKNOWN) [Suspect]
     Active Substance: HEPARIN SODIUM
     Indication: PRODUCT USED FOR UNKNOWN INDICATION
     Dosage: BOLUS DOSE: BASED ON PATIENT`S WEIGHT (WEIGHT UNSPECIFIED)
     Route: 042

REACTIONS (1)
  - Cerebral haemorrhage [Fatal]
